FAERS Safety Report 16656837 (Version 2)
Quarter: 2019Q3

REPORT INFORMATION
  Report Type: Report from Study
  Country: None (occurrence: RO)
  Receive Date: 20190801
  Receipt Date: 20190806
  Transmission Date: 20191004
  Serious: Yes (Hospitalization)
  Sender: FDA-Public Use
  Company Number: RO-ABBVIE-19K-135-2871196-00

PATIENT
  Age: 72 Year
  Sex: Male

DRUGS (3)
  1. DUODOPA [Suspect]
     Active Substance: CARBIDOPA\LEVODOPA
     Indication: PARKINSON^S DISEASE
     Dosage: DM=11.70??DC=4.00??ED=2.00??NRED=0;??DMN=0.00??DCN=0.00??EDN=0.00??NREDN=0
     Route: 050
     Dates: start: 20190311, end: 20190801
  2. NEUPRO [Concomitant]
     Active Substance: ROTIGOTINE
     Indication: PARKINSON^S DISEASE
     Route: 062
     Dates: start: 20190714
  3. ISICOM [Concomitant]
     Active Substance: CARBIDOPA\LEVODOPA
     Indication: PARKINSON^S DISEASE

REACTIONS (5)
  - Motor dysfunction [Unknown]
  - Demyelinating polyneuropathy [Recovering/Resolving]
  - Neuropathy peripheral [Unknown]
  - Cognitive disorder [Unknown]
  - Proteinuria [Unknown]

NARRATIVE: CASE EVENT DATE: 2019
